FAERS Safety Report 14133492 (Version 1)
Quarter: 2017Q4

REPORT INFORMATION
  Report Type: Spontaneous
  Country: IN (occurrence: IN)
  Receive Date: 20171027
  Receipt Date: 20171027
  Transmission Date: 20180321
  Serious: Yes (Disabling, Other)
  Sender: FDA-Public Use
  Company Number: IN-TORRENT-00001394

PATIENT
  Age: 58 Year
  Sex: Female

DRUGS (4)
  1. PRAMIPEXOLE/PRAMIPEXOLE DIHYDROCHLORIDE [Suspect]
     Active Substance: PRAMIPEXOLE DIHYDROCHLORIDE
  2. CARBIDOPA/LEVODOPA [Concomitant]
  3. TRIHEXYPHENIDYL [Concomitant]
     Active Substance: TRIHEXYPHENIDYL
  4. RASAGILINE. [Concomitant]
     Active Substance: RASAGILINE

REACTIONS (3)
  - Hand deformity [Not Recovered/Not Resolved]
  - Dystonia [Recovering/Resolving]
  - Muscle contracture [Not Recovered/Not Resolved]
